FAERS Safety Report 10685574 (Version 3)
Quarter: 2015Q2

REPORT INFORMATION
  Report Type: Spontaneous
  Country: US (occurrence: US)
  Receive Date: 20141231
  Receipt Date: 20150612
  Transmission Date: 20150821
  Serious: Yes (Other)
  Sender: FDA-Public Use
  Company Number: US-BAYER-2014-191311

PATIENT
  Age: 34 Year
  Sex: Female
  Weight: 108.84 kg

DRUGS (3)
  1. MIRAPEX [Concomitant]
     Active Substance: PRAMIPEXOLE DIHYDROCHLORIDE
     Dosage: 0.25 MG, UNK
     Dates: start: 20101028
  2. HYDROCHLOROTHIAZIDE. [Concomitant]
     Active Substance: HYDROCHLOROTHIAZIDE
     Dosage: 25 MG,DAILY PRN
     Dates: start: 20101028
  3. MIRENA [Suspect]
     Active Substance: LEVONORGESTREL
     Indication: MENORRHAGIA
     Dosage: 20 MCG/24HR, CONT
     Route: 015
     Dates: start: 20060213, end: 20101129

REACTIONS (5)
  - Embedded device [None]
  - Device issue [None]
  - Product use issue [None]
  - Injury [None]
  - Pain [None]

NARRATIVE: CASE EVENT DATE: 2008
